FAERS Safety Report 15440256 (Version 1)
Quarter: 2018Q3

REPORT INFORMATION
  Report Type: Spontaneous
  Country: US (occurrence: US)
  Receive Date: 20180925
  Receipt Date: 20180925
  Transmission Date: 20181010
  Serious: Yes (Other)
  Sender: FDA-Public Use
  Company Number: None

PATIENT
  Age: 70 Year
  Sex: Male
  Weight: 97.07 kg

DRUGS (11)
  1. MULTI VITAMIN WITH NO VITAMIN K OR IRON [Concomitant]
  2. IODINE WITH KELP [Concomitant]
  3. MANGANESE [Concomitant]
     Active Substance: MANGANESE\MANGANESE CHLORIDE
  4. 81 MG ENTERIC COATED ASPIRIN [Concomitant]
  5. COENZYME Q10 [Concomitant]
     Active Substance: UBIDECARENONE
  6. CRANBERRY CONCENTRATE [Concomitant]
     Active Substance: CRANBERRY CONCENTRATE
  7. TYLENOL [Concomitant]
     Active Substance: ACETAMINOPHEN
  8. GUAIFENESIN. [Concomitant]
     Active Substance: GUAIFENESIN
  9. VITAMIN D3 [Concomitant]
     Active Substance: CHOLECALCIFEROL
  10. CHOLECALCIFEROL [Concomitant]
     Active Substance: CHOLECALCIFEROL
  11. GADAVIST [Suspect]
     Active Substance: GADOBUTROL
     Indication: NUCLEAR MAGNETIC RESONANCE IMAGING BRAIN
     Dosage: ?          QUANTITY:9.5 ML MILLILITRE(S);OTHER ROUTE:BY INJECTION (POWER INJECTION DURING MRI?
     Dates: start: 20180628, end: 20180628

REACTIONS (7)
  - Hypersomnia [None]
  - Fatigue [None]
  - Arthralgia [None]
  - Pain [None]
  - Blood corticotrophin abnormal [None]
  - Pruritus [None]
  - Feeling abnormal [None]

NARRATIVE: CASE EVENT DATE: 20180628
